FAERS Safety Report 8620113 (Version 2)
Quarter: 2012Q4

REPORT INFORMATION
  Report Type: 
  Country: FR (occurrence: FR)
  Receive Date: 20120618
  Receipt Date: 20120927
  Transmission Date: 20130627
  Serious: Yes (Other)
  Sender: FDA-Public Use
  Company Number: FR-GLAXOSMITHKLINE-B0807791A

PATIENT
  Age: 35 None
  Sex: Male

DRUGS (1)
  1. FLIXOTIDE [Suspect]
     Indication: EOSINOPHILIC OESOPHAGITIS
     Route: 048
     Dates: start: 200909, end: 2011

REACTIONS (2)
  - Urethral disorder [Recovered/Resolved]
  - Dysuria [Recovered/Resolved]
